FAERS Safety Report 17577770 (Version 2)
Quarter: 2020Q2

REPORT INFORMATION
  Report Type: Report from Study
  Country: US (occurrence: US)
  Receive Date: 20200324
  Receipt Date: 20200413
  Transmission Date: 20200713
  Serious: No
  Sender: FDA-Public Use
  Company Number: NVSC2020US082223

PATIENT
  Age: 46 Year
  Sex: Male

DRUGS (1)
  1. ENTRESTO [Suspect]
     Active Substance: SACUBITRIL\VALSARTAN
     Indication: CARDIAC FAILURE CHRONIC
     Dosage: 49.51 MG, BID
     Route: 048
     Dates: start: 202003

REACTIONS (3)
  - Fatigue [Unknown]
  - Chest pain [Unknown]
  - Depression [Unknown]

NARRATIVE: CASE EVENT DATE: 202003
